FAERS Safety Report 13190511 (Version 1)
Quarter: 2017Q1

REPORT INFORMATION
  Report Type: Report from Study
  Country: JP (occurrence: JP)
  Receive Date: 20170206
  Receipt Date: 20170206
  Transmission Date: 20170428
  Serious: Yes (Death, Life-Threatening, Other)
  Sender: FDA-Public Use
  Company Number: JP-GILEAD-2017-0255811

PATIENT
  Age: 4 Year
  Sex: Male

DRUGS (41)
  1. MEROPEN                            /01250501/ [Concomitant]
     Active Substance: MEROPENEM
     Dosage: UNK
     Dates: end: 20110421
  2. MEROPEN                            /01250501/ [Concomitant]
     Active Substance: MEROPENEM
     Dosage: UNK
     Dates: start: 20111005, end: 20111017
  3. BIOFERMIN R (JAPAN) [Concomitant]
     Indication: PROPHYLAXIS AGAINST DIARRHOEA
     Dosage: UNK
     Dates: end: 20110913
  4. GASCON [Concomitant]
     Active Substance: DIMETHICONE
     Dosage: UNK
     Dates: end: 20110519
  5. ALFACALCIDOL [Concomitant]
     Active Substance: ALFACALCIDOL
     Dosage: UNK
     Dates: end: 20111017
  6. GENTAMICIN SULFATE. [Concomitant]
     Active Substance: GENTAMICIN SULFATE
     Dosage: UNK
     Dates: start: 20110910, end: 20111002
  7. CEFTAZIDIME. [Concomitant]
     Active Substance: CEFTAZIDIME
     Dosage: UNK
     Dates: start: 20111002, end: 20111004
  8. VENILON [Concomitant]
     Active Substance: HUMAN IMMUNOGLOBULIN G
     Dosage: UNK
     Dates: start: 20111002, end: 20111005
  9. VENOGLOBULIN IH [Concomitant]
     Active Substance: HUMAN IMMUNOGLOBULIN G
     Dosage: UNK
     Dates: start: 20111006, end: 20111008
  10. MUSCURATE [Concomitant]
     Active Substance: VECURONIUM BROMIDE
     Indication: SEDATION
     Dosage: UNK
     Dates: start: 20110912, end: 20111017
  11. BAKTAR COMBINATION GRANULES [Concomitant]
     Indication: INFECTION PROPHYLAXIS
     Dosage: UNK
     Dates: end: 20110913
  12. AMBRISENTAN [Suspect]
     Active Substance: AMBRISENTAN
     Dosage: 1 MG, QD
     Route: 048
     Dates: start: 20110421, end: 20110502
  13. CLIDAMACIN [Concomitant]
     Active Substance: CLINDAMYCIN
     Dosage: UNK
     Dates: start: 20110908, end: 20111002
  14. CLIDAMACIN [Concomitant]
     Active Substance: CLINDAMYCIN
     Dosage: UNK
     Dates: start: 20111008, end: 20111017
  15. VENILON [Concomitant]
     Active Substance: HUMAN IMMUNOGLOBULIN G
     Dosage: UNK
     Dates: start: 20110908, end: 20110930
  16. VENILON [Concomitant]
     Active Substance: HUMAN IMMUNOGLOBULIN G
     Dosage: UNK
     Dates: start: 20111014, end: 20111017
  17. MEROPEN                            /01250501/ [Concomitant]
     Active Substance: MEROPENEM
     Dosage: UNK
     Dates: start: 20110908, end: 20111002
  18. CLIDAMACIN [Concomitant]
     Active Substance: CLINDAMYCIN
     Dosage: UNK
     Dates: start: 20110702, end: 20110722
  19. ADCIRCA [Concomitant]
     Active Substance: TADALAFIL
     Indication: PULMONARY ARTERIAL HYPERTENSION
     Dosage: UNK
     Dates: end: 20111017
  20. CIPROXAN                           /00697202/ [Concomitant]
     Active Substance: CIPROFLOXACIN
     Dosage: UNK
     Dates: start: 20111002, end: 20111004
  21. FLOLAN [Concomitant]
     Active Substance: EPOPROSTENOL SODIUM
     Indication: PULMONARY ARTERIAL HYPERTENSION
     Dosage: 25 NG/KG, UNK
     Route: 042
     Dates: end: 20110613
  22. FUROSEMIDE. [Concomitant]
     Active Substance: FUROSEMIDE
     Indication: PULMONARY ARTERIAL HYPERTENSION
     Dosage: UNK
     Dates: end: 20110913
  23. TEICOPLANIN [Concomitant]
     Active Substance: TEICOPLANIN
     Dosage: UNK
     Dates: start: 20110423, end: 20110605
  24. TEICOPLANIN [Concomitant]
     Active Substance: TEICOPLANIN
     Dosage: UNK
     Dates: start: 20110711, end: 20110910
  25. VANCOMYCIN [Concomitant]
     Active Substance: VANCOMYCIN
     Dosage: UNK
     Dates: start: 20110629, end: 20110710
  26. AMBRISENTAN [Suspect]
     Active Substance: AMBRISENTAN
     Indication: PULMONARY ARTERIAL HYPERTENSION
     Dosage: 0.5 MG, QD
     Route: 048
     Dates: start: 20110413, end: 20110420
  27. REVATIO [Concomitant]
     Active Substance: SILDENAFIL CITRATE
     Indication: PULMONARY ARTERIAL HYPERTENSION
     Dosage: UNK
  28. DIAZEPAM. [Concomitant]
     Active Substance: DIAZEPAM
     Dosage: UNK
     Dates: end: 20111017
  29. ALESION [Concomitant]
     Active Substance: EPINASTINE HYDROCHLORIDE
     Dosage: UNK
     Dates: end: 20111017
  30. TRICLORYL [Concomitant]
     Active Substance: TRICLOFOS SODIUM
     Indication: SEDATION
     Dosage: UNK
     Dates: end: 20111017
  31. MORPHINE HYDROCHLORIDE [Concomitant]
     Active Substance: MORPHINE HYDROCHLORIDE
     Indication: SEDATION
     Dosage: UNK
     Dates: start: 20111002, end: 20111017
  32. MIDAZOLAM [Concomitant]
     Active Substance: MIDAZOLAM HYDROCHLORIDE
     Indication: SEDATION
     Dosage: UNK
     Dates: start: 20110910, end: 20111017
  33. FENTANYL CITRATE INJECTION [Concomitant]
     Active Substance: FENTANYL CITRATE
     Indication: SEDATION
     Dosage: UNK
     Dates: start: 20110910, end: 20111002
  34. AMBRISENTAN [Suspect]
     Active Substance: AMBRISENTAN
     Dosage: 1.5 MG, QD
     Route: 048
     Dates: start: 20110503, end: 20111017
  35. FLOLAN [Concomitant]
     Active Substance: EPOPROSTENOL SODIUM
     Dosage: 22 NG/KG, UNK
     Route: 042
     Dates: start: 20110613, end: 20110908
  36. FLOLAN [Concomitant]
     Active Substance: EPOPROSTENOL SODIUM
     Dosage: 25 NG/KG, UNK
     Route: 042
     Dates: start: 20110908, end: 20111017
  37. SPIRONOLACTONE. [Concomitant]
     Active Substance: SPIRONOLACTONE
     Indication: PULMONARY ARTERIAL HYPERTENSION
     Dosage: UNK
     Dates: end: 20110913
  38. GLUCONSAN K [Concomitant]
     Dosage: UNK
     Dates: end: 20110913
  39. ONON [Concomitant]
     Active Substance: PRANLUKAST
     Dosage: UNK
     Dates: end: 20111017
  40. TEICOPLANIN [Concomitant]
     Active Substance: TEICOPLANIN
     Dosage: UNK
     Dates: start: 20110921, end: 20111004
  41. ARBEKACIN SULFATE [Concomitant]
     Active Substance: ARBEKACIN SULFATE
     Dosage: UNK
     Dates: start: 20111005, end: 20111017

REACTIONS (8)
  - Hepatic function abnormal [Fatal]
  - Acute respiratory distress syndrome [Not Recovered/Not Resolved]
  - Pulmonary haemorrhage [Not Recovered/Not Resolved]
  - Sepsis [Fatal]
  - Multiple organ dysfunction syndrome [Fatal]
  - Off label use [Unknown]
  - Cardiac failure [Fatal]
  - Pneumonia [Not Recovered/Not Resolved]

NARRATIVE: CASE EVENT DATE: 20110411
